FAERS Safety Report 4999113-5 (Version None)
Quarter: 2006Q1

REPORT INFORMATION
  Report Type: 
  Country: None (occurrence: None)
  Receive Date: 20060315
  Receipt Date: 20051123
  Transmission Date: 20060701
  Serious: Yes (Other)
  Sender: FDA-Public Use
  Company Number: 417785

PATIENT
  Age: 58 Year
  Sex: Female
  Weight: 55.8 kg

DRUGS (1)
  1. BONIVA [Suspect]
     Indication: DRUG USE FOR UNKNOWN INDICATION
     Dosage: ORAL
     Route: 048
     Dates: start: 20050615, end: 20050915

REACTIONS (2)
  - LOWER EXTREMITY MASS [None]
  - MUSCLE SPASMS [None]
